FAERS Safety Report 5065189-2 (Version None)
Quarter: 2006Q3

REPORT INFORMATION
  Report Type: 
  Country: None (occurrence: None)
  Receive Date: 20060705
  Receipt Date: 20050601
  Transmission Date: 20061208
  Serious: Yes (Hospitalization)
  Sender: FDA-Public Use
  Company Number: US-2005-004972

PATIENT
  Age: 17 Year
  Sex: Female

DRUGS (2)
  1. YASMIN [Suspect]
     Indication: POLYCYSTIC OVARIES
     Dosage: 1 TAB(S), 1X/DAY, ORAL
     Route: 048
     Dates: start: 20040201, end: 20040703
  2. SPIRONOLACTONE [Concomitant]

REACTIONS (1)
  - PULMONARY EMBOLISM [None]
